FAERS Safety Report 9506296 (Version 2)
Quarter: 2014Q1

REPORT INFORMATION
  Report Type: Spontaneous
  Country: US (occurrence: None)
  Receive Date: 20130305
  Receipt Date: 20140306
  Transmission Date: 20141002
  Serious: Yes (Other)
  Sender: FDA-Public Use
  Company Number: 163-21880-12051074

PATIENT
  Age: 60 Year
  Sex: Male
  Weight: 74.84 kg

DRUGS (4)
  1. REVLIMID [Suspect]
     Indication: PLASMA CELL MYELOMA
     Route: 048
     Dates: start: 20120420, end: 20120508
  2. POTASSIUM CHLORIDE [Concomitant]
  3. GABAPENTIN [Concomitant]
  4. NORCO (VICODIN) [Concomitant]

REACTIONS (4)
  - Diarrhoea [None]
  - Neuropathy peripheral [None]
  - Rash erythematous [None]
  - Fungal skin infection [None]
